FAERS Safety Report 18920939 (Version 1)
Quarter: 2021Q1

REPORT INFORMATION
  Report Type: Spontaneous
  Country: FR (occurrence: FR)
  Receive Date: 20210222
  Receipt Date: 20210222
  Transmission Date: 20210420
  Serious: Yes (Hospitalization, Other)
  Sender: FDA-Public Use
  Company Number: FR-SA-2021SA057536

PATIENT
  Age: 53 Year
  Sex: Male
  Weight: 84 kg

DRUGS (11)
  1. RIFAMPICIN [Suspect]
     Active Substance: RIFAMPIN
     Indication: ARTHRITIS BACTERIAL
     Dosage: 900 MG, QD
     Route: 048
     Dates: start: 20201228, end: 20210128
  2. ACARBOSE. [Concomitant]
     Active Substance: ACARBOSE
     Dosage: 100 1?0?1
  3. LEVOFLOXACIN. [Suspect]
     Active Substance: LEVOFLOXACIN
     Indication: ARTHRITIS BACTERIAL
     Dosage: 750 MG, QD
     Route: 048
     Dates: start: 20201228, end: 20210128
  4. OPDIVO [Suspect]
     Active Substance: NIVOLUMAB
     Indication: METASTATIC MALIGNANT MELANOMA
     Dosage: 480 MG, Q4W
     Route: 041
     Dates: start: 20201211, end: 20210122
  5. ZOPICLONE [Concomitant]
     Active Substance: ZOPICLONE
     Dosage: 7.5 0?0?1
  6. NOVONORM [Concomitant]
     Active Substance: REPAGLINIDE
     Dosage: 2 1?1?1
  7. AMOXICILLIN. [Suspect]
     Active Substance: AMOXICILLIN
     Indication: ARTHRITIS BACTERIAL
     Dosage: 6 G, QD
     Route: 048
     Dates: start: 20201228, end: 20210128
  8. JANUMET [Concomitant]
     Active Substance: METFORMIN HYDROCHLORIDE\SITAGLIPTIN PHOSPHATE
     Dosage: 50/1000 1?0?1
  9. CRESTOR [Concomitant]
     Active Substance: ROSUVASTATIN CALCIUM
     Dosage: 20 ?0?1
  10. DIAMICRON [Concomitant]
     Active Substance: GLICLAZIDE
     Dosage: 60,  2?0?0
  11. KARDEGIC [Concomitant]
     Active Substance: ASPIRIN DL-LYSINE
     Dosage: 75 1?0?0

REACTIONS (5)
  - Cholestasis [Recovering/Resolving]
  - Lipase increased [Not Recovered/Not Resolved]
  - Rash maculo-papular [Recovering/Resolving]
  - Thrombocytopenia [Recovering/Resolving]
  - Influenza like illness [Recovering/Resolving]

NARRATIVE: CASE EVENT DATE: 20210123
